FAERS Safety Report 13620139 (Version 4)
Quarter: 2017Q3

REPORT INFORMATION
  Report Type: Spontaneous
  Country: JP (occurrence: JP)
  Receive Date: 20170607
  Receipt Date: 20170920
  Transmission Date: 20171127
  Serious: No
  Sender: FDA-Public Use
  Company Number: JP-ROCHE-1944309

PATIENT
  Age: 6 Year
  Sex: Female
  Weight: 38 kg

DRUGS (18)
  1. PREDONINE [Suspect]
     Active Substance: PREDNISOLONE
     Indication: STILL^S DISEASE
     Dosage: ONCE DOSAGE: 5MG-3MG-5MG
     Route: 048
     Dates: start: 20170228, end: 2017
  2. PREDONINE [Suspect]
     Active Substance: PREDNISOLONE
     Indication: STILL^S DISEASE
     Dosage: THE FRACTIONATION DOSE FREQUENCY IS UNCERTAIN. ?DOSE INTERVAL UNCERTAINTY
     Route: 048
     Dates: start: 20170411, end: 2017
  3. TELEMINSOFT [Concomitant]
     Active Substance: BISACODYL
     Dosage: DOSAGE IS UNCERTAIN.
     Route: 065
     Dates: start: 20161013
  4. ACTEMRA [Suspect]
     Active Substance: TOCILIZUMAB
     Indication: STILL^S DISEASE
     Route: 041
     Dates: start: 20170315, end: 20170411
  5. PREDONINE [Suspect]
     Active Substance: PREDNISOLONE
     Indication: STILL^S DISEASE
     Dosage: THE FRACTIONATION DOSE FREQUENCY IS UNCERTAIN. ?DOSE INTERVAL UNCERTAINTY
     Route: 048
     Dates: start: 20161213
  6. PREDONINE [Suspect]
     Active Substance: PREDNISOLONE
     Indication: STILL^S DISEASE
     Dosage: THE FRACTIONATION DOSE FREQUENCY IS UNCERTAIN. ?DOSE INTERVAL UNCERTAINTY
     Route: 048
     Dates: start: 20170801, end: 201708
  7. ACTEMRA [Suspect]
     Active Substance: TOCILIZUMAB
     Indication: STILL^S DISEASE
     Route: 041
     Dates: start: 20170426
  8. AMLODIPINE [Suspect]
     Active Substance: AMLODIPINE BESYLATE
     Indication: PRODUCT USED FOR UNKNOWN INDICATION
     Route: 048
     Dates: start: 20161027
  9. ACTEMRA [Suspect]
     Active Substance: TOCILIZUMAB
     Indication: STILL^S DISEASE
     Route: 041
     Dates: start: 20161114, end: 20161114
  10. PREDONINE [Suspect]
     Active Substance: PREDNISOLONE
     Indication: STILL^S DISEASE
     Dosage: THE FRACTIONATION DOSE FREQUENCY IS UNCERTAIN. ?DOSE INTERVAL UNCERTAINTY
     Route: 048
     Dates: start: 20170620, end: 2017
  11. ACTEMRA [Suspect]
     Active Substance: TOCILIZUMAB
     Indication: STILL^S DISEASE
     Route: 041
     Dates: start: 20161126, end: 20161217
  12. ACTEMRA [Suspect]
     Active Substance: TOCILIZUMAB
     Indication: STILL^S DISEASE
     Route: 041
     Dates: start: 20170202, end: 20170228
  13. PREDONINE [Suspect]
     Active Substance: PREDNISOLONE
     Indication: STILL^S DISEASE
     Dosage: THE FRACTIONATION DOSE FREQUENCY IS UNCERTAIN. ?DOSE INTERVAL UNCERTAINTY
     Route: 048
     Dates: start: 20170607, end: 201706
  14. ACTEMRA [Suspect]
     Active Substance: TOCILIZUMAB
     Indication: STILL^S DISEASE
     Route: 041
     Dates: start: 20161227, end: 20161227
  15. ACTEMRA [Suspect]
     Active Substance: TOCILIZUMAB
     Indication: STILL^S DISEASE
     Route: 041
     Dates: start: 20170111, end: 20170125
  16. PREDONINE [Suspect]
     Active Substance: PREDNISOLONE
     Indication: STILL^S DISEASE
     Dosage: THE FRACTIONATION DOSE FREQUENCY IS UNCERTAIN. ?DOSE INTERVAL UNCERTAINTY
     Route: 048
     Dates: start: 20170719, end: 201707
  17. PREDONINE [Suspect]
     Active Substance: PREDNISOLONE
     Indication: STILL^S DISEASE
     Dosage: THE FRACTIONATION DOSE FREQUENCY IS UNCERTAIN. ?DOSE INTERVAL UNCERTAINTY
     Route: 048
     Dates: start: 20170816
  18. NEORAL [Suspect]
     Active Substance: CYCLOSPORINE
     Indication: STILL^S DISEASE
     Route: 048
     Dates: start: 20161014

REACTIONS (3)
  - Hepatic steatosis [Unknown]
  - Hepatomegaly [Unknown]
  - Hepatic enzyme increased [Not Recovered/Not Resolved]

NARRATIVE: CASE EVENT DATE: 20170314
